FAERS Safety Report 10664646 (Version 2)
Quarter: 2015Q1

REPORT INFORMATION
  Report Type: Spontaneous
  Country: CA (occurrence: None)
  Receive Date: 20141217
  Receipt Date: 20150318
  Transmission Date: 20150720
  Serious: Yes (Other)
  Sender: FDA-Public Use
  Company Number: 2014CA010630

PATIENT
  Age: 81 Year
  Sex: Male

DRUGS (1)
  1. ELIGARD [Suspect]
     Active Substance: LEUPROLIDE ACETATE
     Indication: PROSTATE CANCER
     Dosage: EVERY 4 MONTHS
     Route: 058
     Dates: start: 2011, end: 20141208

REACTIONS (7)
  - Hot flush [None]
  - Fatigue [None]
  - Muscle atrophy [None]
  - Arthralgia [None]
  - Prostate cancer recurrent [None]
  - Joint swelling [None]
  - Abdominal pain upper [None]
